FAERS Safety Report 13677297 (Version 1)
Quarter: 2017Q2

REPORT INFORMATION
  Report Type: Spontaneous
  Country: US (occurrence: US)
  Receive Date: 20170621
  Receipt Date: 20170621
  Transmission Date: 20170830
  Serious: Yes (Life-Threatening, Hospitalization, Disabling, Other)
  Sender: FDA-Public Use
  Company Number: None

PATIENT
  Age: 60 Year
  Sex: Female
  Weight: 48.6 kg

DRUGS (8)
  1. PROGESTERONE. [Concomitant]
     Active Substance: PROGESTERONE
  2. VITAMIN C [Concomitant]
     Active Substance: ASCORBIC ACID
  3. ATIVAN [Suspect]
     Active Substance: LORAZEPAM
     Indication: INSOMNIA
     Dates: start: 19990715, end: 20160121
  4. DIGESTIVE ENZYMES [Concomitant]
     Active Substance: UNSPECIFIED INGREDIENT
  5. VITAMIN B COMPLEX [Concomitant]
     Active Substance: CYANOCOBALAMIN\DEXPANTHENOL\NIACINAMIDE\PYRIDOXINE HYDROCHLORIDE\RIBOFLAVIN 5^-PHOSPHATE SODIUM\THIAMINE HYDROCHLORIDE\VITAMIN B COMPLEX
  6. BI-EST [Concomitant]
  7. MAGNESIUM [Concomitant]
     Active Substance: MAGNESIUM
  8. ATIVAN [Suspect]
     Active Substance: LORAZEPAM
     Indication: ANXIETY
     Dates: start: 19990715, end: 20160121

REACTIONS (23)
  - Tinnitus [None]
  - Insomnia [None]
  - Multiple injuries [None]
  - Pain [None]
  - Drug tolerance [None]
  - Muscle tightness [None]
  - Paraesthesia [None]
  - Haemorrhage [None]
  - Withdrawal syndrome [None]
  - Infection [None]
  - Hallucination [None]
  - Vision blurred [None]
  - Night sweats [None]
  - Weight increased [None]
  - Impaired work ability [None]
  - Agoraphobia [None]
  - Weight decreased [None]
  - Drug use disorder [None]
  - Amnesia [None]
  - Alopecia [None]
  - Anxiety [None]
  - Swelling [None]
  - Balance disorder [None]

NARRATIVE: CASE EVENT DATE: 20160121
